FAERS Safety Report 20833191 (Version 6)
Quarter: 2022Q3

REPORT INFORMATION
  Report Type: Spontaneous
  Country: US (occurrence: US)
  Receive Date: 20220516
  Receipt Date: 20220720
  Transmission Date: 20221026
  Serious: No
  Sender: FDA-Public Use
  Company Number: US-PFIZER INC-202200690547

PATIENT
  Age: 45 Year
  Sex: Female
  Weight: 70.748 kg

DRUGS (5)
  1. PAXLOVID [Suspect]
     Active Substance: NIRMATRELVIR\RITONAVIR
     Indication: COVID-19 treatment
     Dosage: [PF-07321332 150 MG]/[RITONAVIR 100 MG]; 2X/DAY
     Dates: start: 20220430, end: 20220505
  2. ZINC CHLORIDE [Concomitant]
     Active Substance: ZINC CHLORIDE
     Dosage: UNK
     Dates: start: 20220428
  3. LEVOCARNITINE [Concomitant]
     Active Substance: LEVOCARNITINE
     Indication: Medium-chain acyl-coenzyme A dehydrogenase deficiency
     Dosage: UNK, DAILY
     Dates: start: 20220401, end: 20220509
  4. LEVOCARNITINE [Concomitant]
     Active Substance: LEVOCARNITINE
     Dosage: UNK, DAILY
  5. NATURE^S BOUNTY ZINC GLUCONATE [Concomitant]
     Dosage: UNK
     Dates: start: 20220429, end: 20220509

REACTIONS (5)
  - COVID-19 [Not Recovered/Not Resolved]
  - Disease recurrence [Not Recovered/Not Resolved]
  - Joint swelling [Recovered/Resolved]
  - Mobility decreased [Recovered/Resolved]
  - Mass [Recovered/Resolved]

NARRATIVE: CASE EVENT DATE: 20220509
